FAERS Safety Report 11782102 (Version 1)
Quarter: 2015Q4

REPORT INFORMATION
  Report Type: Spontaneous
  Country: FR (occurrence: FR)
  Receive Date: 20151127
  Receipt Date: 20151127
  Transmission Date: 20160305
  Serious: Yes (Death, Other)
  Sender: FDA-Public Use
  Company Number: FR-009507513-1511FRA014149

PATIENT
  Sex: Female

DRUGS (2)
  1. MERCILON [Suspect]
     Active Substance: DESOGESTREL\ETHINYL ESTRADIOL
     Dosage: UNK
     Route: 048
     Dates: start: 199012, end: 19911231
  2. MARSILID [Suspect]
     Active Substance: IPRONIAZID
     Dosage: 25 MG ON MORNING AND MIDDAY
     Route: 048
     Dates: start: 199111, end: 19911225

REACTIONS (2)
  - Hepatic necrosis [Fatal]
  - Hepatitis [Fatal]
